FAERS Safety Report 17396654 (Version 2)
Quarter: 2020Q1

REPORT INFORMATION
  Report Type: Spontaneous
  Country: US (occurrence: US)
  Receive Date: 20200210
  Receipt Date: 20200226
  Transmission Date: 20200409
  Serious: No
  Sender: FDA-Public Use
  Company Number: US-GE HEALTHCARE LIFE SCIENCES-2019CSU005296

PATIENT

DRUGS (4)
  1. MYOVIEW [Suspect]
     Active Substance: TECHNETIUM TC-99M TETROFOSMIN
     Indication: PRODUCT USED FOR UNKNOWN INDICATION
  2. TECHNETIUM TC 99M [Concomitant]
     Active Substance: TECHNETIUM TC-99M
  3. MYOVIEW [Suspect]
     Active Substance: TECHNETIUM TC-99M TETROFOSMIN
     Indication: CARDIAC FUNCTION TEST
     Dosage: 32.36 MCI, UNK
     Route: 065
     Dates: start: 20190930, end: 20190930
  4. MYOVIEW [Suspect]
     Active Substance: TECHNETIUM TC-99M TETROFOSMIN
     Indication: CARDIAC STRESS TEST
     Dosage: 10.26 MCI, UNK
     Route: 065
     Dates: start: 20190930, end: 20190930

REACTIONS (2)
  - No adverse event [Recovered/Resolved]
  - Radioisotope scan abnormal [Recovered/Resolved]

NARRATIVE: CASE EVENT DATE: 20190930
